FAERS Safety Report 5590311-9 (Version None)
Quarter: 2007Q4

REPORT INFORMATION
  Report Type: 
  Country: None (occurrence: None)
  Receive Date: 20071214
  Receipt Date: 20070402
  Transmission Date: 20080405
  Serious: Yes (Hospitalization, Other)
  Sender: FDA-Public Use
  Company Number: 2007019442

PATIENT
  Age: 52 Year
  Sex: Female
  Weight: 103.9 kg

DRUGS (2)
  1. XANAX [Suspect]
     Dates: start: 20060901
  2. CYMBALTA [Suspect]
     Indication: DEPRESSION
     Dosage: 60MG (DAILY)
     Dates: start: 20060901

REACTIONS (2)
  - OVERDOSE [None]
  - SUICIDE ATTEMPT [None]
